FAERS Safety Report 6609371-9 (Version None)
Quarter: 2010Q1

REPORT INFORMATION
  Report Type: 
  Country: None (occurrence: None)
  Receive Date: 20100224
  Receipt Date: 20100129
  Transmission Date: 20100710
  Serious: Yes (Life-Threatening, Hospitalization)
  Sender: FDA-Public Use
  Company Number: 003641

PATIENT
  Age: 76 Year
  Sex: Female
  Weight: 106.9 kg

DRUGS (3)
  1. MACUGEN [Suspect]
     Indication: MACULAR DEGENERATION
     Dosage: 0.3MG, UNK, INTRAVENOUS
     Route: 042
     Dates: start: 20090706
  2. LEVOFLOXACIN [Concomitant]
  3. BROMFENAC SODIUM (BROMFENAC SODIUM) [Concomitant]

REACTIONS (8)
  - BLOOD PRESSURE DECREASED [None]
  - CARDIAC FAILURE [None]
  - CORONARY ARTERY OCCLUSION [None]
  - DYSPNOEA [None]
  - MYOCARDIAL INFARCTION [None]
  - REFLUX OESOPHAGITIS [None]
  - URINARY TRACT INFECTION [None]
  - VENTRICULAR HYPOKINESIA [None]
